FAERS Safety Report 4991046-3 (Version None)
Quarter: 2006Q2

REPORT INFORMATION
  Report Type: 
  Country: None (occurrence: None)
  Receive Date: 20060503
  Receipt Date: 20041230
  Transmission Date: 20061013
  Serious: Yes (Hospitalization, Disabling)
  Sender: FDA-Public Use
  Company Number: US-MERCK-0501USA00019

PATIENT
  Age: 58 Year
  Sex: Male
  Weight: 116 kg

DRUGS (2)
  1. VIOXX [Suspect]
     Indication: ARTHRITIS
     Route: 048
     Dates: start: 20000501, end: 20041001
  2. [THERAPY UNSPECIFIED] [Concomitant]
     Route: 065

REACTIONS (17)
  - ABDOMINAL PAIN LOWER [None]
  - ACUTE CORONARY SYNDROME [None]
  - ARTERIOSCLEROSIS CORONARY ARTERY [None]
  - BRADYCARDIA [None]
  - CORONARY ARTERY STENOSIS [None]
  - DIABETES MELLITUS [None]
  - FLANK PAIN [None]
  - HYPOTENSION [None]
  - LIMB INJURY [None]
  - LUNG INFILTRATION [None]
  - MYOCARDIAL INFARCTION [None]
  - NECK INJURY [None]
  - NEPHROLITHIASIS [None]
  - NERVE COMPRESSION [None]
  - OVERDOSE [None]
  - SLEEP APNOEA SYNDROME [None]
  - THYROID DISORDER [None]
